FAERS Safety Report 25032621 (Version 1)
Quarter: 2025Q1

REPORT INFORMATION
  Report Type: Spontaneous
  Country: AR (occurrence: AR)
  Receive Date: 20250303
  Receipt Date: 20250303
  Transmission Date: 20250408
  Serious: Yes (Other)
  Sender: EMD SERONO INC
  Company Number: AR-Merck S.A.-2025009708

PATIENT
  Sex: Female

DRUGS (1)
  1. AVELUMAB [Suspect]
     Active Substance: AVELUMAB
     Indication: Product used for unknown indication

REACTIONS (2)
  - Neuropathy peripheral [Unknown]
  - VIth nerve paralysis [Unknown]
